FAERS Safety Report 4873064-9 (Version None)
Quarter: 2006Q1

REPORT INFORMATION
  Report Type: 
  Country: None (occurrence: None)
  Receive Date: 20060105
  Receipt Date: 20051209
  Transmission Date: 20060701
  Serious: Yes (Other)
  Sender: FDA-Public Use
  Company Number: CA-BRISTOL-MYERS SQUIBB COMPANY-13219027

PATIENT
  Age: 86 Year
  Sex: Female

DRUGS (8)
  1. TEQUIN [Suspect]
     Route: 048
  2. ASPIRIN [Concomitant]
  3. LASIX [Concomitant]
  4. LISINOPRIL [Concomitant]
  5. METOPROLOL [Concomitant]
  6. NORVASC [Concomitant]
  7. RANITIDINE [Concomitant]
  8. SPIRONOLACTONE [Concomitant]

REACTIONS (3)
  - CARDIAC FAILURE [None]
  - COMA [None]
  - HYPERGLYCAEMIA [None]
